FAERS Safety Report 6443689-8 (Version None)
Quarter: 2009Q4

REPORT INFORMATION
  Report Type: 
  Country: None (occurrence: None)
  Receive Date: 20091117
  Receipt Date: 20091104
  Transmission Date: 20100525
  Serious: Yes (Other)
  Sender: FDA-Public Use
  Company Number: US-MYLANLABS-2009S1019282

PATIENT
  Sex: Male

DRUGS (5)
  1. KEPPRA [Suspect]
     Indication: EPILEPSY
     Route: 064
     Dates: start: 20080920, end: 20081201
  2. KEPPRA [Suspect]
     Route: 064
     Dates: start: 20090201
  3. LEVETIRACETAM [Suspect]
     Indication: EPILEPSY
     Route: 064
     Dates: start: 20081201, end: 20090201
  4. VITAMIN TAB [Concomitant]
     Route: 064
     Dates: start: 20081101
  5. FOLIC ACID [Concomitant]
     Route: 064
     Dates: start: 20081101

REACTIONS (3)
  - AMNIOTIC FLUID VOLUME DECREASED [None]
  - DRUG EXPOSURE DURING PREGNANCY [None]
  - FOETAL GROWTH RETARDATION [None]
